FAERS Safety Report 11149853 (Version 1)
Quarter: 2015Q2

REPORT INFORMATION
  Report Type: Spontaneous
  Country: US (occurrence: US)
  Receive Date: 20150529
  Receipt Date: 20150529
  Transmission Date: 20150821
  Serious: Yes (Hospitalization, Disabling)
  Sender: FDA-Public Use
  Company Number: US-ENDO PHARMACEUTICALS INC.-201504053

PATIENT
  Sex: Male
  Weight: 62.65 kg

DRUGS (1)
  1. TESTIM [Suspect]
     Active Substance: TESTOSTERONE
     Indication: ANDROGEN REPLACEMENT THERAPY
     Route: 062
     Dates: start: 2008, end: 2012

REACTIONS (4)
  - Fluid overload [Unknown]
  - Acute myocardial infarction [Unknown]
  - Haemorrhagic anaemia [Unknown]
  - Angina pectoris [Unknown]

NARRATIVE: CASE EVENT DATE: 20130421
